FAERS Safety Report 14401780 (Version 2)
Quarter: 2018Q3

REPORT INFORMATION
  Report Type: Spontaneous
  Country: US (occurrence: US)
  Receive Date: 20180117
  Receipt Date: 20180801
  Transmission Date: 20181010
  Serious: Yes (Hospitalization)
  Sender: FDA-Public Use
  Company Number: US-PFIZER INC-2018014326

PATIENT
  Age: 39 Year
  Sex: Female

DRUGS (7)
  1. OXYGEN. [Interacting]
     Active Substance: OXYGEN
     Indication: PNEUMONIA ADENOVIRAL
  2. METHYLPREDNISOLONE ACETATE. [Interacting]
     Active Substance: METHYLPREDNISOLONE ACETATE
     Dosage: 40 MG, DAILY (TAPER OF 40 MG IV MP DAILY FOR 2 DAYS)
     Route: 042
  3. METHYLPREDNISOLONE ACETATE. [Suspect]
     Active Substance: METHYLPREDNISOLONE ACETATE
     Indication: HISTIOCYTOSIS HAEMATOPHAGIC
     Dosage: 1 G, UNK (ADMINISTERED PRIOR TO ECMO; AND FROM ECMO DAY 9 TO 11)
     Route: 042
  4. OXYGEN. [Interacting]
     Active Substance: OXYGEN
     Indication: ACUTE RESPIRATORY DISTRESS SYNDROME
     Dosage: UNK
  5. HYDROCORTISONE SODIUM SUCCINATE [Interacting]
     Active Substance: HYDROCORTISONE SODIUM SUCCINATE
     Indication: HISTIOCYTOSIS HAEMATOPHAGIC
     Dosage: 50 MG, 4X/DAY (EVERY 6 HOURS)
     Route: 042
  6. OXYGEN. [Interacting]
     Active Substance: OXYGEN
     Indication: EOSINOPHILIA
  7. METHYLPREDNISOLONE ACETATE. [Interacting]
     Active Substance: METHYLPREDNISOLONE ACETATE
     Dosage: 1 G, UNK
     Route: 042

REACTIONS (2)
  - Cortisol decreased [Unknown]
  - Drug-device interaction [Unknown]
